FAERS Safety Report 6307773-1 (Version None)
Quarter: 2009Q3

REPORT INFORMATION
  Report Type: 
  Country: None (occurrence: None)
  Receive Date: 20090813
  Receipt Date: 20090805
  Transmission Date: 20100115
  Serious: Yes (Hospitalization)
  Sender: FDA-Public Use
  Company Number: ES-NOVOPROD-289687

PATIENT
  Age: 85 Year
  Sex: Male

DRUGS (9)
  1. NOVONORM [Suspect]
     Indication: TYPE 2 DIABETES MELLITUS
     Route: 048
     Dates: start: 20081201, end: 20081226
  2. OMEPRAZOLE [Concomitant]
  3. METFORMIN [Concomitant]
     Indication: TYPE 2 DIABETES MELLITUS
  4. ARICEPT                            /01318901/ [Concomitant]
     Indication: DEMENTIA
  5. EUTIROX                            /00068001/ [Concomitant]
     Indication: HYPOTHYROIDISM
  6. EZETROL [Concomitant]
  7. FORTECORTIN                        /00016001/ [Concomitant]
     Indication: HYPERLIPIDAEMIA
  8. ISCOVER [Concomitant]
  9. ISODIUR                            /01036501/ [Concomitant]
     Indication: HYPERTENSION

REACTIONS (2)
  - HYPOGLYCAEMIA [None]
  - LOSS OF CONSCIOUSNESS [None]
